FAERS Safety Report 4647918-2 (Version None)
Quarter: 2005Q2

REPORT INFORMATION
  Report Type: 
  Country: None (occurrence: None)
  Receive Date: 20050427
  Receipt Date: 20050427
  Transmission Date: 20051028
  Serious: Yes (Other)
  Sender: FDA-Public Use
  Company Number: None

PATIENT
  Age: 43 Year
  Sex: Male
  Weight: 90.7194 kg

DRUGS (1)
  1. GENOTROPIN [Suspect]
     Indication: BLOOD GROWTH HORMONE DECREASED
     Dosage: 0.2 MG  DAILY  INTRAMUSCU
     Route: 030
     Dates: start: 20050101, end: 20050425

REACTIONS (3)
  - DRUG INEFFECTIVE [None]
  - INFUSION SITE BURNING [None]
  - PHARMACEUTICAL PRODUCT COUNTERFEIT [None]
